FAERS Safety Report 6054849-2 (Version None)
Quarter: 2009Q1

REPORT INFORMATION
  Report Type: 
  Country: None (occurrence: None)
  Receive Date: 20090128
  Receipt Date: 20090116
  Transmission Date: 20090719
  Serious: Yes (Other)
  Sender: FDA-Public Use
  Company Number: JP-PFIZER INC-2009157583

PATIENT

DRUGS (2)
  1. NORVASC [Suspect]
     Route: 048
  2. TAKEPRON [Concomitant]

REACTIONS (1)
  - RHABDOMYOLYSIS [None]
